FAERS Safety Report 18409207 (Version 3)
Quarter: 2022Q1

REPORT INFORMATION
  Report Type: Spontaneous
  Country: US (occurrence: US)
  Receive Date: 20201021
  Receipt Date: 20220228
  Transmission Date: 20220423
  Serious: No
  Sender: FDA-Public Use
  Company Number: US-SA-2020SA296548

PATIENT
  Age: 49 Year
  Sex: Female

DRUGS (23)
  1. DUPIXENT [Suspect]
     Active Substance: DUPILUMAB
     Indication: Dermatitis atopic
     Dosage: 600 MG, 1X
     Route: 058
     Dates: start: 2020, end: 2020
  2. DUPIXENT [Suspect]
     Active Substance: DUPILUMAB
     Dosage: 300 MG, QOW
     Route: 058
     Dates: start: 20201013
  3. XYZAL [Concomitant]
     Active Substance: LEVOCETIRIZINE DIHYDROCHLORIDE
  4. BUSPIRONE HCL [Concomitant]
     Active Substance: BUSPIRONE HYDROCHLORIDE
  5. PIMECROLIMUS [Concomitant]
     Active Substance: PIMECROLIMUS
  6. NAPROXEN [Concomitant]
     Active Substance: NAPROXEN
  7. DULOXETINE HYDROCHLORIDE [Concomitant]
     Active Substance: DULOXETINE HYDROCHLORIDE
  8. VITAMIN D2 [Concomitant]
     Active Substance: ERGOCALCIFEROL
  9. HYDROXYCHLOROQUINE SULFATE [Concomitant]
     Active Substance: HYDROXYCHLOROQUINE SULFATE
  10. DOXYCYCLINE HYCLATE [Concomitant]
     Active Substance: DOXYCYCLINE HYCLATE
  11. METRONIDAZOLE [Concomitant]
     Active Substance: METRONIDAZOLE
  12. IBUPROFEN [Concomitant]
     Active Substance: IBUPROFEN
  13. ACETAMINOPHEN AND CODEINE [Concomitant]
     Active Substance: ACETAMINOPHEN\CODEINE PHOSPHATE
  14. NORLYDA [Concomitant]
     Active Substance: NORETHINDRONE
  15. FOLIC ACID [Concomitant]
     Active Substance: FOLIC ACID
  16. TRAZODONE HCL [Concomitant]
     Active Substance: TRAZODONE HYDROCHLORIDE
  17. SYNTHROID [Concomitant]
     Active Substance: LEVOTHYROXINE SODIUM
  18. NORETHINDRONE [NORETHISTERONE ACETATE] [Concomitant]
  19. CLINDAMYCIN HYDROCHLORIDE [Concomitant]
     Active Substance: CLINDAMYCIN HYDROCHLORIDE
  20. FLUCONAZOLE [Concomitant]
     Active Substance: FLUCONAZOLE
  21. ZENPEP [Concomitant]
     Active Substance: PANCRELIPASE AMYLASE\PANCRELIPASE LIPASE\PANCRELIPASE PROTEASE
  22. ACETAMINOPHEN\HYDROCODONE [Concomitant]
     Active Substance: ACETAMINOPHEN\HYDROCODONE
  23. CARAFATE [Concomitant]
     Active Substance: SUCRALFATE

REACTIONS (9)
  - Sunburn [Unknown]
  - Rebound atopic dermatitis [Unknown]
  - Pruritus [Unknown]
  - Pain of skin [Unknown]
  - Emotional disorder [Unknown]
  - Impaired quality of life [Unknown]
  - Adverse drug reaction [Unknown]
  - Intentional dose omission [Unknown]
  - Product dose omission issue [Unknown]
